FAERS Safety Report 10084623 (Version 1)
Quarter: 2014Q2

REPORT INFORMATION
  Report Type: Spontaneous
  Country: US (occurrence: US)
  Receive Date: 20140417
  Receipt Date: 20140417
  Transmission Date: 20141212
  Serious: Yes (Other)
  Sender: FDA-Public Use
  Company Number: US-PFIZER INC-2014107071

PATIENT
  Age: 71 Year
  Sex: Female
  Weight: 56.69 kg

DRUGS (1)
  1. ATORVASTATIN CALCIUM [Suspect]
     Dosage: 10 MG, UNK
     Dates: start: 20140402

REACTIONS (7)
  - Haemorrhage [Unknown]
  - Drug hypersensitivity [Unknown]
  - Arthralgia [Unknown]
  - Groin pain [Unknown]
  - Pruritus [Unknown]
  - Erythema [Unknown]
  - Haematoma [Unknown]
